FAERS Safety Report 23232157 (Version 2)
Quarter: 2023Q4

REPORT INFORMATION
  Report Type: Spontaneous
  Country: US (occurrence: US)
  Receive Date: 20231127
  Receipt Date: 20231207
  Transmission Date: 20240110
  Serious: Yes (Other)
  Sender: FDA-Public Use
  Company Number: US-BRISTOL-MYERS SQUIBB COMPANY-2023-166957

PATIENT
  Age: 75 Year
  Sex: Female

DRUGS (2)
  1. POMALYST [Suspect]
     Active Substance: POMALIDOMIDE
     Indication: Plasma cell myeloma refractory
     Route: 048
     Dates: start: 20231116
  2. POMALYST [Suspect]
     Active Substance: POMALIDOMIDE
     Dosage: 1 QD
     Route: 048

REACTIONS (5)
  - Neuropathy peripheral [Not Recovered/Not Resolved]
  - Arthralgia [Not Recovered/Not Resolved]
  - Hypotension [Unknown]
  - Dizziness [Unknown]
  - Asthenia [Unknown]

NARRATIVE: CASE EVENT DATE: 20231116
